FAERS Safety Report 8530075 (Version 2)
Quarter: 2014Q1

REPORT INFORMATION
  Report Type: Spontaneous
  Country: US (occurrence: US)
  Receive Date: 20120425
  Receipt Date: 20140207
  Transmission Date: 20141002
  Serious: Yes (Hospitalization)
  Sender: FDA-Public Use
  Company Number: US-GLAXOSMITHKLINE-B0694221A

PATIENT
  Age: 70 Year
  Sex: Female
  Weight: 143.2 kg

DRUGS (7)
  1. AVANDIA [Suspect]
     Indication: DIABETES MELLITUS
     Dosage: 4MG TWICE PER DAY
     Route: 048
     Dates: start: 200102, end: 20080613
  2. AVANDAMET [Suspect]
     Indication: DIABETES MELLITUS
     Dosage: 2TAB PER DAY
     Route: 048
     Dates: start: 20050207, end: 20050621
  3. GLUCOTROL [Concomitant]
  4. LIPITOR [Concomitant]
  5. AVAPRO [Concomitant]
  6. LIPITOR [Concomitant]
  7. TAMOXIFEN [Concomitant]

REACTIONS (6)
  - Myocardial infarction [Not Recovered/Not Resolved]
  - Cardiac failure congestive [Unknown]
  - Cerebrovascular accident [Unknown]
  - Transient ischaemic attack [Unknown]
  - Ischaemic cardiomyopathy [Unknown]
  - Angina pectoris [Unknown]
